FAERS Safety Report 24715357 (Version 1)
Quarter: 2024Q4

REPORT INFORMATION
  Report Type: Spontaneous
  Country: GB (occurrence: GB)
  Receive Date: 20241210
  Receipt Date: 20241210
  Transmission Date: 20250115
  Serious: Yes (Other)
  Sender: SANDOZ
  Company Number: GB-MHRA-34102384

PATIENT
  Sex: Male

DRUGS (1)
  1. OMEPRAZOLE [Suspect]
     Active Substance: OMEPRAZOLE
     Indication: Gastrooesophageal reflux disease
     Dosage: PAST 20 YEARS HAVE TAKEN TWICE DAILY OMEPRAZOLE
     Route: 065

REACTIONS (3)
  - Deafness [Not Recovered/Not Resolved]
  - Spinal osteoarthritis [Unknown]
  - Tinnitus [Not Recovered/Not Resolved]
